FAERS Safety Report 8925026 (Version 2)
Quarter: 2012Q4

REPORT INFORMATION
  Report Type: 
  Country: FR (occurrence: FR)
  Receive Date: 20121126
  Receipt Date: 20121129
  Transmission Date: 20130627
  Serious: Yes (Other)
  Sender: FDA-Public Use
  Company Number: FR-UCBSA-069946

PATIENT
  Sex: Female

DRUGS (3)
  1. CIMZIA [Suspect]
     Indication: RHEUMATOID ARTHRITIS
     Dosage: 200 MG
     Route: 058
     Dates: start: 201109, end: 201203
  2. METHOTREXATE [Concomitant]
     Dosage: 15MG
  3. METHOTREXATE [Concomitant]
     Dosage: 10 mg

REACTIONS (2)
  - Urticaria chronic [Recovered/Resolved]
  - Dyspnoea [Recovering/Resolving]
